FAERS Safety Report 5709955-6 (Version None)
Quarter: 2008Q2

REPORT INFORMATION
  Report Type: 
  Country: None (occurrence: None)
  Receive Date: 20080418
  Receipt Date: 20070731
  Transmission Date: 20081010
  Serious: Yes (Other)
  Sender: FDA-Public Use
  Company Number: US-ASTRAZENECA-2007UW18838

PATIENT
  Age: 75 Year
  Sex: Male
  Weight: 60.8 kg

DRUGS (5)
  1. TOPROL-XL [Suspect]
     Route: 048
  2. CRESTOR [Concomitant]
     Indication: BLOOD CHOLESTEROL INCREASED
     Route: 048
     Dates: start: 20070601
  3. PLAVIX [Concomitant]
  4. ASPIRIN [Concomitant]
  5. ACCUPRIL [Concomitant]

REACTIONS (3)
  - ANORGASMIA [None]
  - ERECTILE DYSFUNCTION [None]
  - INGUINAL HERNIA [None]
